FAERS Safety Report 17291758 (Version 1)
Quarter: 2020Q1

REPORT INFORMATION
  Report Type: Spontaneous
  Country: US (occurrence: US)
  Receive Date: 20200117
  Receipt Date: 20200117
  Transmission Date: 20200409
  Serious: No
  Sender: FDA-Public Use
  Company Number: None

PATIENT
  Age: 3 Year
  Sex: Female
  Weight: 14.4 kg

DRUGS (2)
  1. CEPHALEXIN FOR ORAL SUSPENSION [Suspect]
     Active Substance: CEPHALEXIN
     Indication: URINARY TRACT INFECTION
     Dosage: ?          QUANTITY:1 TEASPOON(S);?
     Route: 048
  2. ZYRTEC [Concomitant]
     Active Substance: CETIRIZINE HYDROCHLORIDE

REACTIONS (2)
  - Urinary retention [None]
  - Micturition urgency [None]

NARRATIVE: CASE EVENT DATE: 20200113
